FAERS Safety Report 8293934-1 (Version None)
Quarter: 2012Q2

REPORT INFORMATION
  Report Type: 
  Country: None (occurrence: None)
  Receive Date: 20120418
  Receipt Date: 20120410
  Transmission Date: 20120825
  Serious: No
  Sender: FDA-Public Use
  Company Number: US-PFIZER INC-2012085418

PATIENT
  Sex: Female
  Weight: 72.562 kg

DRUGS (13)
  1. RANITIDINE [Concomitant]
     Indication: GASTROOESOPHAGEAL REFLUX DISEASE
     Dosage: 300 MG, DAILY
  2. LOVASTATIN [Concomitant]
     Indication: BODY FAT DISORDER
     Dosage: 40 MG, DAILY
  3. LEVOTHYROXINE [Concomitant]
     Indication: THYROID DISORDER
     Dosage: 100 UG, DAILY
  4. VENLAFAXINE HYDROCHLORIDE [Suspect]
     Dosage: 150 MG, 2X/DAY
     Dates: start: 20120301
  5. METFORMIN [Concomitant]
     Indication: BLOOD GLUCOSE ABNORMAL
     Dosage: 1000 MG, 2X/DAY
  6. GLIMEPIRIDE [Concomitant]
     Indication: BLOOD GLUCOSE ABNORMAL
     Dosage: 1 MG, DAILY
  7. VENLAFAXINE HYDROCHLORIDE [Suspect]
     Indication: ANXIETY
     Dosage: 225 MG, DAILY
     Dates: start: 20110101
  8. INDERAL [Concomitant]
     Indication: TREMOR
     Dosage: 20 MG, 2X/DAY
     Route: 048
  9. MELOXICAM [Concomitant]
     Indication: ARTHRALGIA
  10. NEXIUM [Concomitant]
     Indication: GASTROOESOPHAGEAL REFLUX DISEASE
     Dosage: 40 MG, DAILY
  11. VENLAFAXINE HYDROCHLORIDE [Suspect]
     Indication: DEPRESSION
     Dosage: UNK
  12. LORAZEPAM [Concomitant]
     Indication: SLEEP DISORDER
     Dosage: 1 MG, DAILY
  13. MELOXICAM [Concomitant]
     Indication: ARTHRITIS
     Dosage: 15 MG, DAILY

REACTIONS (5)
  - DRUG INEFFECTIVE [None]
  - NERVOUSNESS [None]
  - WITHDRAWAL SYNDROME [None]
  - CRYING [None]
  - DEPRESSION [None]
